FAERS Safety Report 5407890-4 (Version None)
Quarter: 2007Q3

REPORT INFORMATION
  Report Type: 
  Country: None (occurrence: None)
  Receive Date: 20070807
  Receipt Date: 20070801
  Transmission Date: 20080115
  Serious: Yes (Hospitalization)
  Sender: FDA-Public Use
  Company Number: US-MERCK-0708USA00520

PATIENT
  Age: 86 Year
  Sex: Female

DRUGS (7)
  1. FOSAMAX [Suspect]
     Indication: OSTEOPOROSIS
     Route: 048
     Dates: start: 20070401, end: 20070101
  2. FOSAMAX [Suspect]
     Route: 048
     Dates: start: 20070701, end: 20070713
  3. FOSAMAX [Suspect]
     Route: 048
     Dates: start: 19970401, end: 20070401
  4. XALATAN [Concomitant]
     Route: 065
  5. SINGULAIR [Concomitant]
     Route: 065
  6. LIPITOR [Concomitant]
     Route: 065
  7. [THERAPY UNSPECIFIED] [Concomitant]
     Route: 065

REACTIONS (2)
  - HEAD DISCOMFORT [None]
  - HEART RATE IRREGULAR [None]
